FAERS Safety Report 21187012 (Version 1)
Quarter: 2022Q3

REPORT INFORMATION
  Report Type: Report from Study
  Country: US (occurrence: US)
  Receive Date: 20220808
  Receipt Date: 20220808
  Transmission Date: 20221027
  Serious: Yes (Other)
  Sender: FDA-Public Use
  Company Number: US-BRISTOL-MYERS SQUIBB COMPANY-2022-081722

PATIENT
  Age: 60 Year
  Sex: Female
  Weight: 86.18 kg

DRUGS (8)
  1. THALOMID [Suspect]
     Active Substance: THALIDOMIDE
     Indication: Chronic cutaneous lupus erythematosus
     Route: 048
     Dates: start: 20211023
  2. TYLENOL [Concomitant]
     Active Substance: ACETAMINOPHEN
     Indication: Product used for unknown indication
     Route: 065
  3. BENAZEPRIL [Concomitant]
     Active Substance: BENAZEPRIL HYDROCHLORIDE
     Indication: Product used for unknown indication
     Route: 065
  4. POTASSIUM [Concomitant]
     Active Substance: POTASSIUM
     Indication: Product used for unknown indication
     Route: 065
  5. FOLIC ACID [Concomitant]
     Active Substance: FOLIC ACID
     Indication: Product used for unknown indication
     Route: 065
  6. IRON FERROUS [Concomitant]
     Indication: Product used for unknown indication
     Route: 065
  7. HIDROXIZINA [HYDROXYZINE] [Concomitant]
     Indication: Product used for unknown indication
     Route: 065
  8. VITAMINS NOS [Concomitant]
     Active Substance: VITAMINS
     Indication: Product used for unknown indication
     Route: 065

REACTIONS (5)
  - White blood cell count decreased [Unknown]
  - Platelet count decreased [Unknown]
  - Diverticulitis [Unknown]
  - Red blood cell count decreased [Unknown]
  - Intentional product use issue [Unknown]
